FAERS Safety Report 4441997-3 (Version None)
Quarter: 2004Q3

REPORT INFORMATION
  Report Type: 
  Country: None (occurrence: None)
  Receive Date: 20040901
  Receipt Date: 20040824
  Transmission Date: 20050211
  Serious: Yes (Other)
  Sender: FDA-Public Use
  Company Number: 2004229947US

PATIENT
  Age: 61 Year
  Sex: Female

DRUGS (4)
  1. PROVERA [Suspect]
     Dates: start: 19830101, end: 19961008
  2. PREMARIN [Suspect]
     Dates: start: 19830101, end: 19961008
  3. PREMARIN [Suspect]
     Dates: start: 20000224, end: 20021222
  4. PREMPRO [Suspect]
     Dates: start: 19961008, end: 20000224

REACTIONS (2)
  - BREAST CANCER [None]
  - OVARIAN CANCER [None]
